FAERS Safety Report 7650020-9 (Version None)
Quarter: 2011Q3

REPORT INFORMATION
  Report Type: 
  Country: None (occurrence: None)
  Receive Date: 20110802
  Receipt Date: 20110725
  Transmission Date: 20111222
  Serious: Yes (Hospitalization, Other)
  Sender: FDA-Public Use
  Company Number: DE-JNJFOC-20110508845

PATIENT
  Sex: Male

DRUGS (11)
  1. TRAMADOL HYDROCHLORIDE [Concomitant]
     Route: 065
     Dates: end: 20110615
  2. RISPERDAL CONSTA [Suspect]
     Route: 030
     Dates: start: 20110511, end: 20110608
  3. LORAZEPAM [Suspect]
     Indication: PRODUCT USED FOR UNKNOWN INDICATION
     Route: 065
     Dates: end: 20110615
  4. MELPERON [Suspect]
     Indication: PRODUCT USED FOR UNKNOWN INDICATION
     Route: 065
     Dates: end: 20110615
  5. ENALAPRIL MALEATE [Suspect]
     Indication: PRODUCT USED FOR UNKNOWN INDICATION
     Route: 065
     Dates: end: 20110615
  6. RISPERDAL CONSTA [Suspect]
     Indication: AGGRESSION
     Route: 030
     Dates: start: 20110309, end: 20110511
  7. TORSEMIDE [Suspect]
     Indication: PRODUCT USED FOR UNKNOWN INDICATION
     Route: 065
     Dates: end: 20110615
  8. ASPIRIN [Concomitant]
     Route: 065
  9. TAMSULOSIN HCL [Concomitant]
     Route: 065
  10. PANTOPRAZOLE [Concomitant]
     Route: 065
  11. BISOPROLOL FUMARATE [Suspect]
     Indication: PRODUCT USED FOR UNKNOWN INDICATION
     Route: 065

REACTIONS (4)
  - GAIT DISTURBANCE [None]
  - DEPRESSED LEVEL OF CONSCIOUSNESS [None]
  - GENERAL PHYSICAL HEALTH DETERIORATION [None]
  - HYPOTENSION [None]
